FAERS Safety Report 18842044 (Version 1)
Quarter: 2021Q1

REPORT INFORMATION
  Report Type: Report from Study
  Country: US (occurrence: US)
  Receive Date: 20210203
  Receipt Date: 20210203
  Transmission Date: 20210419
  Serious: Yes (Other)
  Sender: FDA-Public Use
  Company Number: US-SHIRE-US201842178AA

PATIENT
  Age: 66 Year
  Sex: Female

DRUGS (2)
  1. GAMMAGARD LIQUID [Suspect]
     Active Substance: HUMAN IMMUNOGLOBULIN G
     Indication: PRIMARY IMMUNODEFICIENCY SYNDROME
  2. GAMMAGARD LIQUID [Suspect]
     Active Substance: HUMAN IMMUNOGLOBULIN G
     Indication: IMMUNODEFICIENCY COMMON VARIABLE
     Dosage: UNK
     Route: 065
     Dates: end: 2018

REACTIONS (17)
  - Sinusitis [Not Recovered/Not Resolved]
  - Infusion site erythema [Unknown]
  - Eating disorder [Unknown]
  - Immunoglobulins decreased [Unknown]
  - Erythema [Unknown]
  - Leukaemia [Unknown]
  - Pleurisy [Unknown]
  - Infusion site discomfort [Unknown]
  - Infusion site swelling [Unknown]
  - Burning sensation [Unknown]
  - Pain [Unknown]
  - Illness [Unknown]
  - Oral mucosal blistering [Unknown]
  - Poor venous access [Unknown]
  - Nerve injury [Not Recovered/Not Resolved]
  - Pyrexia [Unknown]
  - White blood cell count decreased [Unknown]

NARRATIVE: CASE EVENT DATE: 20181026
